FAERS Safety Report 23808180 (Version 7)
Quarter: 2024Q3

REPORT INFORMATION
  Report Type: Report from Study
  Country: US (occurrence: US)
  Receive Date: 20240502
  Receipt Date: 20240830
  Transmission Date: 20241017
  Serious: Yes (Other)
  Sender: NOVARTIS
  Company Number: US-002147023-NVSC2024US090691

PATIENT
  Age: 60 Year
  Sex: Female

DRUGS (2)
  1. KESIMPTA [Suspect]
     Active Substance: OFATUMUMAB
     Indication: Relapsing multiple sclerosis
     Dosage: 20 MG, QW
     Route: 058
     Dates: start: 20240426
  2. TYLENOL [Concomitant]
     Active Substance: ACETAMINOPHEN
     Indication: Product used for unknown indication
     Dosage: UNK, UNKNOWN
     Route: 065

REACTIONS (23)
  - Delirium [Unknown]
  - Multiple sclerosis [Unknown]
  - Constipation [Unknown]
  - Muscular weakness [Unknown]
  - Pelvic floor dysfunction [Unknown]
  - Fatigue [Recovering/Resolving]
  - Pyrexia [Recovering/Resolving]
  - Chills [Unknown]
  - Gait disturbance [Unknown]
  - Influenza like illness [Recovering/Resolving]
  - Musculoskeletal stiffness [Unknown]
  - Malaise [Unknown]
  - Moaning [Unknown]
  - Feeling abnormal [Unknown]
  - Fear [Unknown]
  - Stress [Unknown]
  - Vertigo [Unknown]
  - Temperature intolerance [Unknown]
  - Visual impairment [Unknown]
  - Oedema peripheral [Unknown]
  - Neuralgia [Unknown]
  - Sneezing [Unknown]
  - Nasal congestion [Unknown]

NARRATIVE: CASE EVENT DATE: 20240426
